FAERS Safety Report 5102739-1 (Version None)
Quarter: 2006Q3

REPORT INFORMATION
  Report Type: 
  Country: None (occurrence: None)
  Receive Date: 20060907
  Receipt Date: 20060817
  Transmission Date: 20061208
  Serious: Yes (Hospitalization)
  Sender: FDA-Public Use
  Company Number: GB200608001123

PATIENT
  Age: 69 Year
  Sex: Female

DRUGS (8)
  1. CYMBALTA [Suspect]
     Indication: DEPRESSION
     Dosage: 60 MG, UNK, ORAL
     Route: 048
     Dates: start: 20060401, end: 20060801
  2. OLANZAPINE [Concomitant]
  3. CARBAMAZEPINE [Concomitant]
  4. SALBUTAMOL (SALBUTAMOL) [Concomitant]
  5. FLUTICASONE PROPIONATE [Concomitant]
  6. ASPIRIN [Concomitant]
  7. BENDROFLUMETHIAZIDE (BENDROFLUMETHIAZIDE) [Concomitant]
  8. VALSARTAN [Concomitant]

REACTIONS (2)
  - GASTRIC HAEMORRHAGE [None]
  - GASTRIC ULCER PERFORATION [None]
